FAERS Safety Report 7698878-1 (Version None)
Quarter: 2011Q3

REPORT INFORMATION
  Report Type: 
  Country: None (occurrence: None)
  Receive Date: 20110819
  Receipt Date: 20110812
  Transmission Date: 20111222
  Serious: Yes (Disabling, Other)
  Sender: FDA-Public Use
  Company Number: PHEH2009US16962

PATIENT
  Sex: Female

DRUGS (16)
  1. FENTANYL [Concomitant]
  2. METHYLPREDNISOLONE [Concomitant]
  3. OXYCODONE HCL [Concomitant]
     Route: 048
  4. CHLORHEXIDINE GLUCONATE [Concomitant]
  5. HYDROCODONE [Concomitant]
     Route: 048
  6. TRAMADOL HCL [Concomitant]
     Route: 048
  7. THALIDOMIDE [Concomitant]
     Dosage: 50 MG, DAILY
  8. NAPROXEN [Concomitant]
     Route: 048
  9. PENICILLIN VK [Concomitant]
     Route: 048
  10. AMLODIPINE BESYLATE [Concomitant]
     Dosage: 5 MG, DAILY
  11. ALKERAN [Concomitant]
     Dosage: 6 MG, DAILY FOR 7 DAYS EVERY 6 WEEKS
  12. AMOX-CLAV [Concomitant]
     Route: 048
  13. IBUPROFEN [Concomitant]
  14. ZOMETA [Suspect]
  15. ASPIRIN [Concomitant]
     Dosage: 81 MG, PER DAY
  16. SENNACOTS [Concomitant]

REACTIONS (20)
  - MULTIPLE MYELOMA [None]
  - INJURY [None]
  - HYPOAESTHESIA [None]
  - SLEEP APNOEA SYNDROME [None]
  - RENAL ARTERY ARTERIOSCLEROSIS [None]
  - ANXIETY [None]
  - ANAEMIA [None]
  - BONE LESION [None]
  - RENAL DISORDER [None]
  - PRIMARY SEQUESTRUM [None]
  - HERPES ZOSTER [None]
  - PAIN [None]
  - MONOCLONAL GAMMOPATHY [None]
  - ANHEDONIA [None]
  - FATIGUE [None]
  - EXPOSED BONE IN JAW [None]
  - OSTEONECROSIS OF JAW [None]
  - PAIN IN JAW [None]
  - HYPERTENSION [None]
  - NIGHT SWEATS [None]
